FAERS Safety Report 7124406-5 (Version None)
Quarter: 2010Q4

REPORT INFORMATION
  Report Type: 
  Country: None (occurrence: None)
  Receive Date: 20101126
  Receipt Date: 20101123
  Transmission Date: 20110411
  Serious: Yes (Other)
  Sender: FDA-Public Use
  Company Number: US-BRISTOL-MYERS SQUIBB COMPANY-15403496

PATIENT
  Sex: Female

DRUGS (2)
  1. ABILIFY [Suspect]
  2. PROZAC [Concomitant]

REACTIONS (1)
  - MANIA [None]
